FAERS Safety Report 7948410-X (Version None)
Quarter: 2011Q4

REPORT INFORMATION
  Report Type: 
  Country: None (occurrence: None)
  Receive Date: 20111130
  Receipt Date: 20111121
  Transmission Date: 20120403
  Serious: Yes (Other)
  Sender: FDA-Public Use
  Company Number: US-CELGENEUS-163-21880-11063628

PATIENT
  Sex: Male

DRUGS (11)
  1. DEXAMETHASONE [Concomitant]
     Dosage: 4 MILLIGRAM
     Route: 048
     Dates: start: 20100617
  2. METOPIRONE [Concomitant]
     Dosage: 250 MILLIGRAM
     Route: 048
     Dates: start: 20100617
  3. REVLIMID [Suspect]
     Indication: MULTIPLE MYELOMA
     Dosage: 25 MILLIGRAM
     Route: 048
     Dates: start: 20070527
  4. WARFARIN SODIUM [Concomitant]
     Dosage: 2.5 MILLIGRAM
     Route: 048
     Dates: start: 20100617
  5. OMEPRAZOLE [Concomitant]
     Dosage: 20 MILLIGRAM
     Route: 048
     Dates: start: 20100617
  6. GABAPENTIN [Concomitant]
     Dosage: 1200 MILLIGRAM
     Route: 065
  7. DIGOXIN [Concomitant]
     Dosage: .125 MILLIGRAM
     Route: 048
     Dates: start: 20100617
  8. METOPROLOL TARTRATE [Concomitant]
     Dosage: 75 MILLIGRAM
     Route: 065
  9. AMBIEN [Concomitant]
     Dosage: 10 MILLIGRAM
     Route: 065
  10. REVLIMID [Suspect]
     Dosage: 10 MILLIGRAM
     Route: 048
     Dates: start: 20110301, end: 20110727
  11. CITALOPRAM [Concomitant]
     Dosage: 20 MILLIGRAM
     Route: 048
     Dates: start: 20100617

REACTIONS (1)
  - MITRAL VALVE INCOMPETENCE [None]
